FAERS Safety Report 17520309 (Version 1)
Quarter: 2020Q1

REPORT INFORMATION
  Report Type: Report from Study
  Country: CR (occurrence: CR)
  Receive Date: 20200310
  Receipt Date: 20200310
  Transmission Date: 20200409
  Serious: Yes (Other)
  Sender: FDA-Public Use
  Company Number: NVSC2020CR040617

PATIENT
  Age: 55 Year
  Sex: Male
  Weight: 114 kg

DRUGS (3)
  1. EXFORGE HCT [Suspect]
     Active Substance: AMLODIPINE BESYLATE\HYDROCHLOROTHIAZIDE\VALSARTAN
     Indication: HYPERTENSION
     Dosage: 1 DF (5MG/160MG/25MG)
     Route: 065
     Dates: start: 201503, end: 20200206
  2. SPIRONOLACTONE. [Concomitant]
     Active Substance: SPIRONOLACTONE
     Indication: PRODUCT USED FOR UNKNOWN INDICATION
     Dosage: UNK
     Route: 065
  3. EXFORGE [Suspect]
     Active Substance: AMLODIPINE BESYLATE\VALSARTAN
     Indication: PRODUCT USED FOR UNKNOWN INDICATION
     Dosage: (5MG/160MG)
     Route: 065

REACTIONS (8)
  - Albuminuria [Unknown]
  - Renal impairment [Unknown]
  - Monocyte count increased [Unknown]
  - High density lipoprotein increased [Unknown]
  - Blood creatinine increased [Unknown]
  - Lymphocyte count increased [Unknown]
  - Protein total abnormal [Unknown]
  - Creatinine renal clearance decreased [Unknown]

NARRATIVE: CASE EVENT DATE: 20180416
